FAERS Safety Report 20659572 (Version 2)
Quarter: 2022Q2

REPORT INFORMATION
  Report Type: Spontaneous
  Country: US (occurrence: US)
  Receive Date: 20220331
  Receipt Date: 20220413
  Transmission Date: 20220721
  Serious: Yes (Life-Threatening, Hospitalization)
  Sender: FDA-Public Use
  Company Number: US-TEVA-2022-US-2021524

PATIENT
  Age: 61 Year
  Sex: Male
  Weight: 94.7 kg

DRUGS (1)
  1. METHYLPREDNISOLONE [Suspect]
     Active Substance: METHYLPREDNISOLONE
     Indication: Product used for unknown indication
     Route: 065

REACTIONS (7)
  - Disseminated strongyloidiasis [Recovering/Resolving]
  - Respiratory disorder [Unknown]
  - Mental status changes [Recovering/Resolving]
  - Enterococcal infection [Unknown]
  - Meningitis [Unknown]
  - Confusional state [Unknown]
  - Ileus [Unknown]
